FAERS Safety Report 11684530 (Version 2)
Quarter: 2015Q4

REPORT INFORMATION
  Report Type: Report from Study
  Country: NL (occurrence: NL)
  Receive Date: 20151029
  Receipt Date: 20151117
  Transmission Date: 20160304
  Serious: Yes (Death, Life-Threatening, Other)
  Sender: FDA-Public Use
  Company Number: NL-ABBVIE-15P-114-1488122-00

PATIENT
  Age: 83 Year
  Sex: Male

DRUGS (1)
  1. DUODOPA [Suspect]
     Active Substance: CARBIDOPA\LEVODOPA
     Indication: PARKINSON^S DISEASE
     Dosage: 20/5MG/ML; CONTINUOUS;
     Route: 050
     Dates: start: 20151019

REACTIONS (5)
  - Death [Fatal]
  - Nasal congestion [Unknown]
  - Pneumonia [Not Recovered/Not Resolved]
  - Pain [Unknown]
  - Terminal state [Not Recovered/Not Resolved]

NARRATIVE: CASE EVENT DATE: 20151029
